FAERS Safety Report 7393659-0 (Version None)
Quarter: 2011Q2

REPORT INFORMATION
  Report Type: 
  Country: None (occurrence: None)
  Receive Date: 20110405
  Receipt Date: 20101020
  Transmission Date: 20111010
  Serious: Yes (Hospitalization)
  Sender: FDA-Public Use
  Company Number: US-BAYER-201014307NA

PATIENT
  Sex: Female
  Weight: 142.4 kg

DRUGS (12)
  1. FEXOFENADINE [Concomitant]
  2. ALLEGRA [Concomitant]
     Route: 048
  3. RISPERDAL [Concomitant]
     Dosage: 2 MG, UNK
     Route: 048
  4. YAZ [Suspect]
     Indication: PREMENSTRUAL SYNDROME
  5. LEXAPRO [Concomitant]
     Dosage: 20 MG, UNK
     Route: 048
     Dates: end: 20100420
  6. VALTREX [Concomitant]
     Indication: GENITAL HERPES
     Dosage: 1 MG, UNK
     Route: 048
  7. YAZ [Suspect]
     Indication: CONTRACEPTION
     Dates: start: 20080130, end: 20080101
  8. ABILIFY [Concomitant]
     Route: 048
  9. HYDROXYZINE [Concomitant]
     Indication: SLEEP DISORDER THERAPY
     Route: 048
  10. FLONASE [Concomitant]
  11. STRATTERA [Concomitant]
  12. VISTARIL [Suspect]
     Route: 048

REACTIONS (11)
  - CHEST PAIN [None]
  - PAIN IN EXTREMITY [None]
  - MENORRHAGIA [None]
  - PULMONARY EMBOLISM [None]
  - DYSPNOEA [None]
  - COAGULOPATHY [None]
  - DEEP VEIN THROMBOSIS [None]
  - SWELLING [None]
  - SLEEP DISORDER [None]
  - HEADACHE [None]
  - SLEEP APNOEA SYNDROME [None]
